FAERS Safety Report 16709541 (Version 1)
Quarter: 2019Q3

REPORT INFORMATION
  Report Type: Spontaneous
  Country: US (occurrence: US)
  Receive Date: 20190701
  Receipt Date: 20190701
  Transmission Date: 20191004
  Serious: No
  Sender: FDA-Public Use
  Company Number: None

PATIENT
  Age: 47 Year
  Sex: Female

DRUGS (1)
  1. HUMIRA [Suspect]
     Active Substance: ADALIMUMAB
     Indication: PSORIASIS
     Dosage: ?          OTHER FREQUENCY:EVERY2WKS;?
     Route: 058
     Dates: start: 20190212, end: 20190529

REACTIONS (2)
  - Injection site erythema [None]
  - Skin reaction [None]

NARRATIVE: CASE EVENT DATE: 20190626
